FAERS Safety Report 7347943-7 (Version None)
Quarter: 2011Q1

REPORT INFORMATION
  Report Type: 
  Country: None (occurrence: None)
  Receive Date: 20110311
  Receipt Date: 20110207
  Transmission Date: 20110831
  Serious: Yes (Hospitalization, Other)
  Sender: FDA-Public Use
  Company Number: US-BAYER-201033773NA

PATIENT
  Sex: Female
  Weight: 79.819 kg

DRUGS (8)
  1. YASMIN [Suspect]
     Dosage: UNK
     Dates: start: 20061008, end: 20071105
  2. YAZ [Suspect]
     Indication: CONTRACEPTION
     Dosage: UNK UNK, UNK
     Route: 048
     Dates: start: 20080701
  3. FLAGYL [Concomitant]
  4. PREVACID [Concomitant]
     Indication: ABDOMINAL PAIN UPPER
     Dosage: 30 MG, QD
  5. OCELLA [Suspect]
     Indication: CONTRACEPTION
     Dosage: UNK UNK, UNK
     Route: 048
     Dates: start: 20080701
  6. YASMIN [Suspect]
     Indication: CONTRACEPTION
     Dosage: UNK UNK, UNK
     Route: 048
     Dates: start: 20080701
  7. YASMIN [Suspect]
     Dosage: UNK
     Dates: start: 20060716, end: 20060813
  8. YASMIN [Suspect]
     Dosage: UNK
     Dates: start: 20080421, end: 20080616

REACTIONS (15)
  - CHOLECYSTITIS CHRONIC [None]
  - DIARRHOEA [None]
  - METRORRHAGIA [None]
  - OLIGOMENORRHOEA [None]
  - BILIARY DYSKINESIA [None]
  - NAUSEA [None]
  - TRICHOMONIASIS [None]
  - ABDOMINAL PAIN [None]
  - HEPATIC STEATOSIS [None]
  - MENTAL DISORDER [None]
  - DYSPAREUNIA [None]
  - VOMITING [None]
  - AMENORRHOEA [None]
  - ANOVULATORY CYCLE [None]
  - CONDITION AGGRAVATED [None]
